FAERS Safety Report 19706992 (Version 1)
Quarter: 2021Q3

REPORT INFORMATION
  Report Type: Spontaneous
  Country: ES (occurrence: ES)
  Receive Date: 20210817
  Receipt Date: 20210817
  Transmission Date: 20211014
  Serious: Yes (Hospitalization)
  Sender: FDA-Public Use
  Company Number: ES-TEVA-2021-ES-1942102

PATIENT
  Age: 4 Decade
  Sex: Female

DRUGS (8)
  1. CARBOPLATIN. [Suspect]
     Active Substance: CARBOPLATIN
     Indication: OVARIAN CANCER
     Route: 050
     Dates: start: 2009
  2. CETIRIZINE [Concomitant]
     Active Substance: CETIRIZINE HYDROCHLORIDE
     Indication: IMMUNE TOLERANCE INDUCTION
     Route: 065
     Dates: start: 2016
  3. CARBOPLATIN. [Suspect]
     Active Substance: CARBOPLATIN
     Indication: OVARIAN CANCER
     Route: 050
     Dates: start: 2016
  4. DEXCHLORPHENIRAMINE [Concomitant]
     Active Substance: DEXCHLORPHENIRAMINE
     Indication: ALLERGY PROPHYLAXIS
     Route: 065
     Dates: start: 2009
  5. 6?METHYLPREDNISOLONE [Concomitant]
     Active Substance: METHYLPREDNISOLONE
     Indication: ALLERGY PROPHYLAXIS
     Route: 065
     Dates: start: 2009
  6. ASPIRIN. [Concomitant]
     Active Substance: ASPIRIN
     Indication: IMMUNE TOLERANCE INDUCTION
     Route: 065
     Dates: start: 2016
  7. MONTELUKAST [Concomitant]
     Active Substance: MONTELUKAST SODIUM
     Indication: IMMUNE TOLERANCE INDUCTION
     Route: 065
     Dates: start: 2016
  8. PREDNISOLONE. [Concomitant]
     Active Substance: PREDNISOLONE
     Indication: IMMUNE TOLERANCE INDUCTION
     Route: 065
     Dates: start: 2016

REACTIONS (3)
  - Haemolytic anaemia [Recovered/Resolved]
  - Hypersensitivity [Recovered/Resolved]
  - Pulmonary embolism [Unknown]

NARRATIVE: CASE EVENT DATE: 2009
